FAERS Safety Report 8589840-5 (Version None)
Quarter: 2012Q3

REPORT INFORMATION
  Report Type: 
  Country: None (occurrence: None)
  Receive Date: 20120813
  Receipt Date: 19900604
  Transmission Date: 20120928
  Serious: Yes (Other)
  Sender: FDA-Public Use
  Company Number: US-ROCHE-1098671

PATIENT
  Sex: Male

DRUGS (10)
  1. ZANTAC [Concomitant]
     Route: 048
  2. CAPOTEN [Concomitant]
  3. CARAFATE [Concomitant]
  4. ASPIRIN [Concomitant]
     Route: 048
  5. PERSANTINE [Concomitant]
     Route: 048
  6. ISORDIL TEMBIDS [Concomitant]
  7. LIDOCAINE [Concomitant]
     Route: 042
  8. DIABETA [Concomitant]
  9. ACTIVASE [Suspect]
     Indication: PRODUCT USED FOR UNKNOWN INDICATION
  10. MYLANTA DOUBLE STRENGTH [Concomitant]
     Route: 048

REACTIONS (2)
  - CHEST PAIN [None]
  - PULMONARY OEDEMA [None]
